FAERS Safety Report 11250566 (Version 1)
Quarter: 2015Q3

REPORT INFORMATION
  Report Type: Spontaneous
  Country: US (occurrence: US)
  Receive Date: 20150708
  Receipt Date: 20150708
  Transmission Date: 20151125
  Serious: No
  Sender: FDA-Public Use
  Company Number: US-ASTRAZENECA-2010BM03712

PATIENT
  Age: 69 Year
  Sex: Female
  Weight: 79.4 kg

DRUGS (8)
  1. EXENATIDE 10MCG PEN, DISPOSABLE DEVICE [Concomitant]
     Active Substance: EXENATIDE
  2. GLYBURIDE. [Concomitant]
     Active Substance: GLYBURIDE
     Indication: TYPE 2 DIABETES MELLITUS
     Route: 048
  3. BYDUREON [Suspect]
     Active Substance: EXENATIDE
     Indication: TYPE 2 DIABETES MELLITUS
     Route: 065
     Dates: start: 20150614
  4. METFORMIN [Concomitant]
     Active Substance: METFORMIN HYDROCHLORIDE
     Indication: TYPE 2 DIABETES MELLITUS
     Route: 048
  5. TOUJEO, INSULIN [Concomitant]
     Indication: TYPE 2 DIABETES MELLITUS
     Dosage: HS
     Route: 058
  6. BYETTA [Suspect]
     Active Substance: EXENATIDE
     Indication: TYPE 2 DIABETES MELLITUS
     Route: 058
  7. BYETTA [Suspect]
     Active Substance: EXENATIDE
     Indication: TYPE 2 DIABETES MELLITUS
     Route: 058
  8. CRESTOR [Concomitant]
     Active Substance: ROSUVASTATIN CALCIUM
     Indication: BLOOD CHOLESTEROL INCREASED
     Route: 048

REACTIONS (4)
  - Injection site pain [Unknown]
  - Blood glucose decreased [Recovered/Resolved]
  - Incorrect dose administered [Recovered/Resolved]
  - Blood glucose increased [Not Recovered/Not Resolved]

NARRATIVE: CASE EVENT DATE: 2010
